FAERS Safety Report 6424466-0 (Version None)
Quarter: 2009Q4

REPORT INFORMATION
  Report Type: 
  Country: None (occurrence: None)
  Receive Date: 20091103
  Receipt Date: 20091030
  Transmission Date: 20100525
  Serious: Yes (Hospitalization, Other)
  Sender: FDA-Public Use
  Company Number: SE-BRISTOL-MYERS SQUIBB COMPANY-14837181

PATIENT
  Age: 75 Year
  Sex: Female

DRUGS (4)
  1. SPRYCEL [Suspect]
     Dosage: SPRYCEL FILM-COATED TABLET 20 MG
     Dates: start: 20061222, end: 20091015
  2. ALVEDON [Concomitant]
     Dosage: ALVEDON TABS
  3. STESOLID [Concomitant]
     Dosage: TABS
  4. LEVOTHYROXINE SODIUM [Concomitant]
     Dosage: 1 DF - 50 MIKROG;TABS

REACTIONS (4)
  - ABDOMINAL PAIN [None]
  - GLAUCOMA [None]
  - PLEURAL EFFUSION [None]
  - PULMONARY HYPERTENSION [None]
